FAERS Safety Report 9486881 (Version 1)
Quarter: 2013Q3

REPORT INFORMATION
  Report Type: Spontaneous
  Country: US (occurrence: US)
  Receive Date: 20130829
  Receipt Date: 20130829
  Transmission Date: 20140515
  Serious: Yes (Death)
  Sender: FDA-Public Use
  Company Number: US-TEVA-428491USA

PATIENT
  Sex: 0

DRUGS (1)
  1. ACTIQ [Suspect]
     Indication: BREAKTHROUGH PAIN
     Route: 002

REACTIONS (1)
  - Neoplasm malignant [Fatal]
